FAERS Safety Report 6991358-8 (Version None)
Quarter: 2010Q3

REPORT INFORMATION
  Report Type: 
  Country: None (occurrence: None)
  Receive Date: 20100916
  Receipt Date: 20090805
  Transmission Date: 20110219
  Serious: No
  Sender: FDA-Public Use
  Company Number: US-WYE-H10487809

PATIENT
  Age: 51 Year
  Sex: Male
  Weight: 79.45 kg

DRUGS (3)
  1. ADVIL PM [Suspect]
     Indication: PAIN
     Dosage: 2 CAPLETS DAILY
     Route: 048
     Dates: start: 20090803, end: 20090804
  2. ADVIL PM [Suspect]
     Indication: INSOMNIA
  3. ADVIL LIQUI-GELS [Suspect]
     Indication: HEADACHE
     Dosage: 4 TABLETS AS NEEDED (DOSE RECOMMENDED BY A HEALTHCARE PROFESSIONAL)
     Route: 048
     Dates: end: 20090804

REACTIONS (1)
  - HYPOAESTHESIA [None]
